FAERS Safety Report 21598699 (Version 9)
Quarter: 2023Q2

REPORT INFORMATION
  Report Type: Report from Study
  Country: US (occurrence: US)
  Receive Date: 20221115
  Receipt Date: 20230523
  Transmission Date: 20230722
  Serious: No
  Sender: FDA-Public Use
  Company Number: US-002147023-NVSC2022US256144

PATIENT
  Sex: Female

DRUGS (1)
  1. COSENTYX [Suspect]
     Active Substance: SECUKINUMAB
     Indication: Psoriatic arthropathy
     Dosage: UNK
     Route: 065

REACTIONS (7)
  - Injection site bruising [Unknown]
  - Injection site haemorrhage [Unknown]
  - Bronchitis [Unknown]
  - Pain [Unknown]
  - Rash macular [Unknown]
  - Joint swelling [Unknown]
  - Drug ineffective [Unknown]
